FAERS Safety Report 19772398 (Version 2)
Quarter: 2021Q3

REPORT INFORMATION
  Report Type: Spontaneous
  Country: GB (occurrence: GB)
  Receive Date: 20210831
  Receipt Date: 20210831
  Transmission Date: 20211014
  Serious: Yes (Other)
  Sender: FDA-Public Use
  Company Number: GB-MYLANLABS-2021M1056397

PATIENT
  Age: 27 Year
  Sex: Female
  Weight: 101.6 kg

DRUGS (1)
  1. PREGABALIN MYLAN [Suspect]
     Active Substance: PREGABALIN
     Indication: SINUS TACHYCARDIA
     Dosage: 25MG TWICE A DAY
     Route: 048
     Dates: start: 20210809, end: 20210823

REACTIONS (1)
  - Eye swelling [Not Recovered/Not Resolved]

NARRATIVE: CASE EVENT DATE: 20210810
